FAERS Safety Report 21395053 (Version 3)
Quarter: 2022Q4

REPORT INFORMATION
  Report Type: Report from Study
  Country: CA (occurrence: CA)
  Receive Date: 20220930
  Receipt Date: 20221107
  Transmission Date: 20230113
  Serious: Yes (Hospitalization, Other)
  Sender: FDA-Public Use
  Company Number: CA-JNJFOC-20220955709

PATIENT
  Age: 17 Year
  Sex: Female
  Weight: 78 kg

DRUGS (5)
  1. REMICADE [Suspect]
     Active Substance: INFLIXIMAB
     Indication: Juvenile idiopathic arthritis
     Route: 042
     Dates: start: 20190828
  2. REMICADE [Suspect]
     Active Substance: INFLIXIMAB
     Indication: Uveitis
     Route: 042
     Dates: start: 20221013, end: 20221014
  3. ACETAMINOPHEN [Concomitant]
     Active Substance: ACETAMINOPHEN
     Indication: Premedication
     Route: 048
     Dates: start: 20221013
  4. DIPHENHYDRAMINE [Concomitant]
     Active Substance: DIPHENHYDRAMINE
     Indication: Premedication
     Route: 048
     Dates: start: 20221013
  5. HYDROCORTISONE [Concomitant]
     Active Substance: HYDROCORTISONE
     Indication: Premedication
     Route: 042
     Dates: start: 20221013

REACTIONS (3)
  - Urinary tract infection [Recovered/Resolved]
  - Infusion related reaction [Recovering/Resolving]
  - Uveitis [Not Recovered/Not Resolved]

NARRATIVE: CASE EVENT DATE: 20220926
